FAERS Safety Report 8619064-4 (Version None)
Quarter: 2012Q3

REPORT INFORMATION
  Report Type: 
  Country: None (occurrence: None)
  Receive Date: 20120824
  Receipt Date: 20120816
  Transmission Date: 20120928
  Serious: Yes (Hospitalization)
  Sender: FDA-Public Use
  Company Number: US-BAYER-2012-085505

PATIENT
  Age: 27 Year
  Sex: Female
  Weight: 87.982 kg

DRUGS (14)
  1. ALVESCO [Concomitant]
  2. NAPROXEN [Concomitant]
     Dosage: 500 MG, UNK
  3. SOLU-MEDROL [Concomitant]
     Dosage: UNK
     Route: 042
     Dates: start: 20110723, end: 20110727
  4. FLONASE [Concomitant]
  5. SINGULAIR [Concomitant]
     Dosage: 10 MG, UNK
  6. FLUTICASONE PROPIONATE [Concomitant]
  7. SOLU-MEDROL [Concomitant]
     Dosage: UNK
     Route: 042
     Dates: start: 20110906, end: 20110910
  8. YASMIN [Suspect]
  9. DROSPIRENONE AND ETHINYL ESTRADIOL [Suspect]
  10. CLARITIN [Concomitant]
     Dosage: 10 MG, UNK
  11. FESOTERODINE [Concomitant]
     Dosage: 8 MG, UNK
  12. RANITIDINE [Concomitant]
     Dosage: 150 MG, UNK
  13. XOPENEX [Concomitant]
  14. LEVOCETIRIZINE DIHYDROCHLORIDE [Concomitant]
     Dosage: 5 MG, UNK

REACTIONS (1)
  - PULMONARY EMBOLISM [None]
